FAERS Safety Report 22618946 (Version 1)
Quarter: 2023Q2

REPORT INFORMATION
  Report Type: Spontaneous
  Country: PT (occurrence: PT)
  Receive Date: 20230620
  Receipt Date: 20230620
  Transmission Date: 20230722
  Serious: Yes (Disabling, Other)
  Sender: FDA-Public Use
  Company Number: PT-drreddys-LIT/POR/23/0160004

PATIENT
  Age: 77 Year
  Sex: Female

DRUGS (4)
  1. AZACITIDINE [Suspect]
     Active Substance: AZACITIDINE
     Indication: Acute myeloid leukaemia
     Dosage: 75 MILLIGRAM/SQ. METER, (FOUR CYCLES, FROM D1-D7, IN CYCLES OF 28 DAYS)
     Route: 065
  2. VENETOCLAX [Concomitant]
     Active Substance: VENETOCLAX
     Indication: Acute myeloid leukaemia
     Dosage: 100 MILLIGRAM(D1)
  3. VENETOCLAX [Concomitant]
     Active Substance: VENETOCLAX
     Dosage: 200 MILLIGRAM(D2)
  4. VENETOCLAX [Concomitant]
     Active Substance: VENETOCLAX
     Dosage: 400 MILLIGRAM(D3 TO D28 IN CYCLE 1 AND SUBSEQUENTLY CONTINUOUS, IN CYCLES OF 28 DAYS)
     Route: 065

REACTIONS (3)
  - Diverticulitis [Unknown]
  - Abdominal abscess [Unknown]
  - Urinary tract infection bacterial [Recovered/Resolved]

NARRATIVE: CASE EVENT DATE: 20200501
